FAERS Safety Report 22019003 (Version 1)
Quarter: 2023Q1

REPORT INFORMATION
  Report Type: Spontaneous
  Country: AU (occurrence: AU)
  Receive Date: 20230222
  Receipt Date: 20230222
  Transmission Date: 20230418
  Serious: Yes (Other)
  Sender: FDA-Public Use
  Company Number: AU-BAXTER-2023BAX013288

PATIENT
  Sex: Male

DRUGS (16)
  1. DOXORUBICIN [Suspect]
     Active Substance: DOXORUBICIN
     Indication: Diffuse large B-cell lymphoma
     Dosage: AS A PART OF R-CHOP CHEMOTHERAPY REGIMEN (X4)
     Route: 065
  2. CYCLOPHOSPHAMIDE [Suspect]
     Active Substance: CYCLOPHOSPHAMIDE
     Indication: Diffuse large B-cell lymphoma
     Dosage: AS A PART OF R-CHOP CHEMOTHERAPY REGIMEN (X4)
     Route: 065
  3. VINCRISTINE [Suspect]
     Active Substance: VINCRISTINE
     Indication: Diffuse large B-cell lymphoma
     Dosage: AS A PART OF R-CHOP CHEMOTHERAPY REGIMEN (X4)
     Route: 065
  4. PREDNISONE [Suspect]
     Active Substance: PREDNISONE
     Indication: Diffuse large B-cell lymphoma
     Dosage: AS A PART OF R-CHOP CHEMOTHERAPY REGIMEN (X4)
     Route: 065
  5. RITUXIMAB [Suspect]
     Active Substance: RITUXIMAB
     Indication: Central nervous system lymphoma
     Dosage: AS A PART OF R-CHOP CHEMOTHERAPY REGIMEN (X4)
     Route: 065
  6. RITUXIMAB [Suspect]
     Active Substance: RITUXIMAB
     Indication: Diffuse large B-cell lymphoma
     Dosage: AS A PART OF MATRIX CHEMOTHERAPY REGIMEN (X 2), HIGH DOSE
     Route: 065
  7. RITUXIMAB [Suspect]
     Active Substance: RITUXIMAB
     Indication: Disease progression
  8. CYTARABINE [Suspect]
     Active Substance: CYTARABINE
     Indication: Central nervous system lymphoma
     Dosage: AS A PART OF MATRIX CHEMOTHERAPY REGIMEN (X 2), HIGH DOSE
     Route: 065
  9. CYTARABINE [Suspect]
     Active Substance: CYTARABINE
     Indication: Diffuse large B-cell lymphoma
  10. CYTARABINE [Suspect]
     Active Substance: CYTARABINE
     Indication: Disease progression
  11. METHOTREXATE [Suspect]
     Active Substance: METHOTREXATE
     Indication: Central nervous system lymphoma
     Dosage: AS A PART OF MATRIX CHEMOTHERAPY REGIMEN (X 2), HIGH DOSE
     Route: 065
  12. METHOTREXATE [Suspect]
     Active Substance: METHOTREXATE
     Indication: Diffuse large B-cell lymphoma
  13. METHOTREXATE [Suspect]
     Active Substance: METHOTREXATE
     Indication: Disease progression
  14. THIOTEPA [Suspect]
     Active Substance: THIOTEPA
     Indication: Central nervous system lymphoma
     Dosage: AS A PART OF MATRIX CHEMOTHERAPY REGIMEN (X 2), HIGH DOSE
     Route: 065
  15. THIOTEPA [Suspect]
     Active Substance: THIOTEPA
     Indication: Diffuse large B-cell lymphoma
  16. THIOTEPA [Suspect]
     Active Substance: THIOTEPA
     Indication: Disease progression

REACTIONS (6)
  - Central nervous system lymphoma [Unknown]
  - Diffuse large B-cell lymphoma [Unknown]
  - Disease progression [Unknown]
  - Ill-defined disorder [Unknown]
  - Central nervous system lesion [Unknown]
  - Disease progression [Unknown]
